FAERS Safety Report 16325822 (Version 1)
Quarter: 2019Q2

REPORT INFORMATION
  Report Type: Spontaneous
  Country: US (occurrence: US)
  Receive Date: 20190516
  Receipt Date: 20190516
  Transmission Date: 20190711
  Serious: Yes (Death)
  Sender: FDA-Public Use
  Company Number: None

PATIENT
  Age: 94 Year
  Sex: Male
  Weight: 60.21 kg

DRUGS (9)
  1. XELODA [Suspect]
     Active Substance: CAPECITABINE
     Indication: PRODUCT USED FOR UNKNOWN INDICATION
     Route: 048
     Dates: start: 20190402, end: 20190426
  2. METOPROLOL. [Concomitant]
     Active Substance: METOPROLOL
  3. CARDIZEM [Concomitant]
     Active Substance: DILTIAZEM HYDROCHLORIDE
  4. ATORVASTATIN [Concomitant]
     Active Substance: ATORVASTATIN
  5. VENTOLIN [Concomitant]
     Active Substance: ALBUTEROL SULFATE
  6. TYLENOL [Concomitant]
     Active Substance: ACETAMINOPHEN
  7. SYMBICORT [Concomitant]
     Active Substance: BUDESONIDE\FORMOTEROL FUMARATE DIHYDRATE
  8. FLUTICASONE. [Concomitant]
     Active Substance: FLUTICASONE
  9. CENTRUM [Concomitant]
     Active Substance: VITAMINS

REACTIONS (1)
  - Death [None]

NARRATIVE: CASE EVENT DATE: 20190426
